FAERS Safety Report 5040672-4 (Version None)
Quarter: 2006Q2

REPORT INFORMATION
  Report Type: 
  Country: None (occurrence: None)
  Receive Date: 20060629
  Receipt Date: 20060629
  Transmission Date: 20061013
  Serious: Yes (Life-Threatening)
  Sender: FDA-Public Use
  Company Number: None

PATIENT
  Age: 59 Year
  Sex: Male
  Weight: 62 kg

DRUGS (3)
  1. NOREPINEPHRINE BITARTRATE [Suspect]
     Dosage: 24 HRS DRIP
     Dates: start: 20060328, end: 20060330
  2. COCAINE [Concomitant]
  3. VASOPRESSIN [Suspect]

REACTIONS (2)
  - CYANOSIS [None]
  - PAIN IN EXTREMITY [None]
